FAERS Safety Report 4557237-0 (Version None)
Quarter: 2005Q1

REPORT INFORMATION
  Report Type: 
  Country: None (occurrence: None)
  Receive Date: 20050119
  Receipt Date: 20050119
  Transmission Date: 20050727
  Serious: No
  Sender: FDA-Public Use
  Company Number: None

PATIENT
  Sex: Female

DRUGS (3)
  1. INDERAL [Suspect]
     Indication: GENERALISED ANXIETY DISORDER
     Dosage: 10 MG PO BID PRN
     Route: 048
     Dates: start: 20041014
  2. INDERAL [Suspect]
     Indication: HYPERTENSION
     Dosage: 10 MG PO BID PRN
     Route: 048
     Dates: start: 20041014
  3. INDERAL [Suspect]
     Indication: OBSESSIVE-COMPULSIVE DISORDER
     Dosage: 10 MG PO BID PRN
     Route: 048
     Dates: start: 20041014

REACTIONS (2)
  - OBSESSIVE-COMPULSIVE DISORDER [None]
  - PHARMACEUTICAL PRODUCT COMPLAINT [None]
